FAERS Safety Report 5525590-7 (Version None)
Quarter: 2007Q4

REPORT INFORMATION
  Report Type: 
  Country: None (occurrence: None)
  Receive Date: 20071126
  Receipt Date: 20071116
  Transmission Date: 20080405
  Serious: Yes (Other)
  Sender: FDA-Public Use
  Company Number: D0055100A

PATIENT
  Age: 43 Year
  Sex: Male

DRUGS (5)
  1. ARIXTRA [Suspect]
     Dosage: 7.5ML PER DAY
     Route: 058
     Dates: start: 20070615
  2. EFFORTIL [Concomitant]
     Indication: HYPOTENSION
     Route: 048
  3. IDEOS [Concomitant]
     Indication: OSTEOPOROSIS
     Route: 048
  4. ALENDRONIC ACID [Concomitant]
     Indication: OSTEOPOROSIS
     Dosage: 70MG UNKNOWN
     Route: 048
  5. SPASMEX [Concomitant]
     Indication: MICTURITION DISORDER
     Dosage: 30MG UNKNOWN
     Route: 048

REACTIONS (5)
  - AURICULAR SWELLING [None]
  - EAR HAEMORRHAGE [None]
  - HAEMORRHAGE [None]
  - INCORRECT DRUG ADMINISTRATION DURATION [None]
  - LOCAL SWELLING [None]
